FAERS Safety Report 16770128 (Version 2)
Quarter: 2019Q3

REPORT INFORMATION
  Report Type: Spontaneous
  Country: US (occurrence: US)
  Receive Date: 20190904
  Receipt Date: 20190911
  Transmission Date: 20191005
  Serious: Yes (Hospitalization, Other)
  Sender: FDA-Public Use
  Company Number: US-DRREDDYS-USA/USA/19/0113804

PATIENT
  Age: 3 Year
  Sex: Male
  Weight: 20 kg

DRUGS (4)
  1. FENTANYL CITRATE. [Suspect]
     Active Substance: FENTANYL CITRATE
     Indication: PROCEDURAL PAIN
     Dosage: POD TO 2: MAX DOSE 5 MCG/KG/H
  2. DEXMEDETOMIDINE. [Concomitant]
     Active Substance: DEXMEDETOMIDINE
     Indication: SEDATION
     Dosage: POD 0 TO 23 AT MAXIMUM DOSE 1 MCG/KG/H
  3. HYDROMORPHONE [Suspect]
     Active Substance: HYDROMORPHONE
     Dosage: POD 2 TO 26: MAX DOSE 0.2 MG/H BASAL WITH 0.2 MG BOLUS PRN
  4. HYDROMORPHONE [Suspect]
     Active Substance: HYDROMORPHONE
     Indication: ANALGESIC THERAPY
     Dosage: POD 2 TO 26: MAX DOSE 0.2 MG/H BASAL WITH 0.2 MG BOLUS PRN

REACTIONS (2)
  - Transplant dysfunction [Recovered/Resolved]
  - Postoperative ileus [Recovered/Resolved]
